FAERS Safety Report 6443711-9 (Version None)
Quarter: 2009Q4

REPORT INFORMATION
  Report Type: 
  Country: None (occurrence: None)
  Receive Date: 20091117
  Receipt Date: 20091109
  Transmission Date: 20100525
  Serious: Yes (Hospitalization)
  Sender: FDA-Public Use
  Company Number: DE-B.I. PHARMACEUTICALS,INC./RIDGEFIELD-2009-DE-06885DE

PATIENT
  Sex: Female
  Weight: 110 kg

DRUGS (3)
  1. SIFROL [Suspect]
     Indication: RESTLESS LEGS SYNDROME
     Dosage: 0.18 MG
     Route: 048
     Dates: start: 20090611, end: 20090622
  2. ANTIHYPERTENSIVES [Concomitant]
     Indication: HYPERTENSION
  3. ANTIDIABETICS [Concomitant]
     Indication: DIABETES MELLITUS

REACTIONS (1)
  - GALLBLADDER OPERATION [None]
